FAERS Safety Report 10945560 (Version 1)
Quarter: 2015Q1

REPORT INFORMATION
  Report Type: Spontaneous
  Country: US (occurrence: None)
  Receive Date: 20150212
  Receipt Date: 20150212
  Transmission Date: 20150721
  Serious: No
  Sender: FDA-Public Use
  Company Number: TPA2011A02077

PATIENT
  Age: 80 Year
  Sex: Female

DRUGS (23)
  1. ULORIC [Suspect]
     Active Substance: FEBUXOSTAT
  2. KLOR-CON [Concomitant]
     Active Substance: POTASSIUM CHLORIDE
  3. CRESTOR [Concomitant]
     Active Substance: ROSUVASTATIN CALCIUM
  4. FOLIC ACID. [Concomitant]
     Active Substance: FOLIC ACID
  5. ACTOS [Concomitant]
     Active Substance: PIOGLITAZONE HYDROCHLORIDE
  6. METOCLOPRAM (METOCLOPRAMIDE HYDROCHLORIDE) [Concomitant]
  7. JANUVIA (ANTI-DIABETES) [Concomitant]
  8. LEVOTHYROXINE [Concomitant]
     Active Substance: LEVOTHYROXINE
  9. SENEKOT (LAXATIVES) [Concomitant]
  10. FUROSEMIDE. [Concomitant]
     Active Substance: FUROSEMIDE
  11. NORCO (PARACEMTAOL, HYDROCODONE BITARTRATE) [Concomitant]
  12. BAYER (ACETYLSALICYLIC ACID) [Concomitant]
  13. MULTIVITAMIN FOR DIABETES (ERGOCALCIFEROL, ASCORBIC ACID, FOLIC ACID, THIAMINE HYDROCHLORIDE, RETINOL, RIBOFLAVIN, NICOTINAMIDE, PANTHENOL) [Concomitant]
  14. NAC (N-ACETYL-CYSTEINE) (ACETYLCYSTEINE) [Concomitant]
  15. GLIPIZIDE. [Concomitant]
     Active Substance: GLIPIZIDE
  16. ZOFRAN (ONDANSETRON HYDROCHLORIDE) [Concomitant]
  17. BENEFIBER (CYAMOPSIS TETRAGONOLOBUS CUM) [Concomitant]
  18. VITAMIN B-1 (THIAMINE HYDROCHLORIDE) [Concomitant]
  19. TYLENOL [Concomitant]
     Active Substance: ACETAMINOPHEN
  20. RANITIDINE [Concomitant]
     Active Substance: RANITIDINE\RANITIDINE HYDROCHLORIDE
  21. LYRICA [Concomitant]
     Active Substance: PREGABALIN
  22. FISH OIL [Concomitant]
     Active Substance: FISH OIL
  23. IRON [Concomitant]
     Active Substance: IRON

REACTIONS (1)
  - Blood glucose decreased [None]
